FAERS Safety Report 15655833 (Version 1)
Quarter: 2018Q4

REPORT INFORMATION
  Report Type: Spontaneous
  Country: BR (occurrence: BR)
  Receive Date: 20181126
  Receipt Date: 20181126
  Transmission Date: 20190205
  Serious: Yes (Death, Hospitalization)
  Sender: FDA-Public Use
  Company Number: BR-SA-2018SA234773

PATIENT
  Age: 70 Year
  Sex: Male
  Weight: 78 kg

DRUGS (8)
  1. CYRAMZA [Suspect]
     Active Substance: RAMUCIRUMAB
     Dosage: 730 UNK
     Route: 042
     Dates: start: 20180714
  2. CYRAMZA [Suspect]
     Active Substance: RAMUCIRUMAB
     Indication: LUNG NEOPLASM MALIGNANT
     Dosage: 730 MG
     Route: 042
     Dates: start: 20180523, end: 20180523
  3. TAXOTERE [Suspect]
     Active Substance: DOCETAXEL
     Indication: LUNG NEOPLASM MALIGNANT
     Dosage: 100 MG, Q3W
     Route: 042
     Dates: start: 20180523, end: 20180523
  4. TAXOTERE [Suspect]
     Active Substance: DOCETAXEL
     Dosage: 100 MG
     Route: 042
     Dates: start: 20180614, end: 20180614
  5. GALVUS [Concomitant]
     Active Substance: VILDAGLIPTIN
  6. ASPIRINA PREVENT [Concomitant]
     Active Substance: ASPIRIN
  7. MERITOR [Concomitant]
     Active Substance: GLIMEPIRIDE\METFORMIN
  8. LANTUS [Concomitant]
     Active Substance: INSULIN GLARGINE

REACTIONS (4)
  - Pneumonia [Recovered/Resolved]
  - Bronchospasm [Recovered/Resolved]
  - Nervous system disorder [Unknown]
  - Disease progression [Fatal]

NARRATIVE: CASE EVENT DATE: 20180714
